FAERS Safety Report 23213831 (Version 1)
Quarter: 2023Q4

REPORT INFORMATION
  Report Type: Report from Study
  Country: US (occurrence: US)
  Receive Date: 20231121
  Receipt Date: 20231121
  Transmission Date: 20240110
  Serious: Yes (Hospitalization)
  Sender: FDA-Public Use
  Company Number: US-JNJFOC-20231133693

PATIENT
  Age: 54 Year
  Sex: Male

DRUGS (8)
  1. SPRAVATO [Suspect]
     Active Substance: ESKETAMINE
     Indication: Depression
     Dosage: ^56 MG, 1 TOTAL DOSE^
     Dates: start: 20230212, end: 20230212
  2. SPRAVATO [Suspect]
     Active Substance: ESKETAMINE
     Dosage: ^84 MG, 1 TOTAL DOSE^
     Dates: start: 20230213, end: 20230213
  3. SPRAVATO [Suspect]
     Active Substance: ESKETAMINE
     Dosage: ^56 MG, 1 TOTAL DOSE^
     Dates: start: 20200226, end: 20230226
  4. SPRAVATO [Suspect]
     Active Substance: ESKETAMINE
     Dosage: ^84 MG, 1 TOTAL DOSE^
     Dates: start: 20230227, end: 20230227
  5. SPRAVATO [Suspect]
     Active Substance: ESKETAMINE
     Dosage: ^42 MG, 1 TOTAL DOSE^
     Dates: start: 20200304, end: 20230304
  6. SPRAVATO [Suspect]
     Active Substance: ESKETAMINE
     Dosage: ^56 MG, 11 TOTAL DOSES^
     Dates: start: 20200318, end: 20211020
  7. SPRAVATO [Suspect]
     Active Substance: ESKETAMINE
     Dosage: ^84 MG, 76 TOTAL DOSES^
     Dates: start: 20211027, end: 20231102
  8. SPRAVATO [Suspect]
     Active Substance: ESKETAMINE
     Dosage: ^84 MG, RECENT ADMINISTERED DOSE^
     Dates: start: 20231109, end: 20231109

REACTIONS (11)
  - Unresponsive to stimuli [Unknown]
  - Vomiting [Unknown]
  - Blood pressure increased [Unknown]
  - Hyperhidrosis [Unknown]
  - Dissociation [Unknown]
  - Dysarthria [Unknown]
  - Retching [Unknown]
  - Pain [Unknown]
  - Incoherent [Unknown]
  - Muscle twitching [Unknown]
  - Strabismus [Unknown]

NARRATIVE: CASE EVENT DATE: 20231109
